FAERS Safety Report 22996759 (Version 2)
Quarter: 2023Q4

REPORT INFORMATION
  Report Type: Report from Study
  Country: US (occurrence: US)
  Receive Date: 20230928
  Receipt Date: 20231127
  Transmission Date: 20240110
  Serious: Yes (Other)
  Sender: FDA-Public Use
  Company Number: US-ABBVIE-5423575

PATIENT
  Age: 62 Year
  Sex: Female

DRUGS (2)
  1. SKYRIZI [Suspect]
     Active Substance: RISANKIZUMAB-RZAA
     Indication: Psoriasis
     Route: 058
     Dates: start: 20220925
  2. PREDNISONE [Concomitant]
     Active Substance: PREDNISONE
     Indication: Product used for unknown indication

REACTIONS (5)
  - Eye operation [Unknown]
  - Psoriasis [Not Recovered/Not Resolved]
  - Drug ineffective [Unknown]
  - Joint range of motion decreased [Unknown]
  - Arthralgia [Unknown]

NARRATIVE: CASE EVENT DATE: 20220925
